FAERS Safety Report 10102174 (Version 1)
Quarter: 2014Q2

REPORT INFORMATION
  Report Type: Spontaneous
  Country: US (occurrence: US)
  Receive Date: 20140424
  Receipt Date: 20140424
  Transmission Date: 20141212
  Serious: No
  Sender: FDA-Public Use
  Company Number: US-PFIZER INC-2014110082

PATIENT
  Sex: Female

DRUGS (6)
  1. FLAGYL [Suspect]
     Dosage: UNK
  2. DEMEROL [Suspect]
     Dosage: UNK
  3. ERYTHROMYCIN [Suspect]
     Dosage: UNK
  4. FERREX 150 FORTE [Suspect]
     Dosage: UNK
  5. MINOCYCLINE HYDROCHLORIDE [Suspect]
     Dosage: UNK
  6. VICODIN [Suspect]
     Dosage: UNK

REACTIONS (3)
  - Drug hypersensitivity [Unknown]
  - Nausea [Unknown]
  - Vomiting [Unknown]
